FAERS Safety Report 5277335-6 (Version None)
Quarter: 2007Q1

REPORT INFORMATION
  Report Type: 
  Country: None (occurrence: None)
  Receive Date: 20061213
  Receipt Date: 20040719
  Transmission Date: 20070707
  Serious: No
  Sender: FDA-Public Use
  Company Number: 2004UW15331

PATIENT
  Sex: Male

DRUGS (2)
  1. SEROQUEL [Suspect]
     Dosage: 400 TO 450 MG / DAY
     Dates: end: 20040701
  2. OLANZAPINE [Concomitant]

REACTIONS (2)
  - DYSKINESIA [None]
  - GRIMACING [None]
